FAERS Safety Report 9314089 (Version 2)
Quarter: 2013Q2

REPORT INFORMATION
  Report Type: Spontaneous
  Country: US (occurrence: US)
  Receive Date: 20130529
  Receipt Date: 20130531
  Transmission Date: 20140414
  Serious: Yes (Other)
  Sender: FDA-Public Use
  Company Number: US-RB-052986-13

PATIENT
  Age: 4 Year
  Sex: Male
  Weight: 19 kg

DRUGS (1)
  1. DELSYM CHILDREN ORANGE [Suspect]
     Indication: COUGH
     Dosage: LAST USED ON 23-MAR-2013
     Route: 048
     Dates: start: 20130322

REACTIONS (6)
  - Hallucination [Recovered/Resolved]
  - Euphoric mood [Recovered/Resolved]
  - Gait disturbance [Recovered/Resolved]
  - Abnormal behaviour [Recovered/Resolved]
  - Gait disturbance [None]
  - Toxicity to various agents [None]
